FAERS Safety Report 25149540 (Version 1)
Quarter: 2025Q2

REPORT INFORMATION
  Report Type: Report from Study
  Country: JP (occurrence: JP)
  Receive Date: 20250402
  Receipt Date: 20250402
  Transmission Date: 20250717
  Serious: Yes (Death, Hospitalization, Other)
  Sender: PFIZER
  Company Number: JP-ONO-2024JP005978

PATIENT
  Age: 81 Year
  Sex: Female
  Weight: 47.3 kg

DRUGS (24)
  1. GEMCITABINE HYDROCHLORIDE [Suspect]
     Active Substance: GEMCITABINE HYDROCHLORIDE
     Indication: Pancreatic carcinoma
     Route: 041
     Dates: start: 20240501
  2. GEMCITABINE HYDROCHLORIDE [Suspect]
     Active Substance: GEMCITABINE HYDROCHLORIDE
     Route: 041
     Dates: start: 20240814, end: 20241023
  3. ELIQUIS [Suspect]
     Active Substance: APIXABAN
     Indication: Peripheral vein thrombosis
     Dosage: 2.5 MG, 2X/DAY
     Route: 048
     Dates: start: 20240117
  4. ELIQUIS [Suspect]
     Active Substance: APIXABAN
     Dosage: 2.5 MG, 2X/DAY
     Route: 048
     Dates: start: 20240402
  5. ELIQUIS [Suspect]
     Active Substance: APIXABAN
     Dosage: 2.5 MG, 2X/DAY
     Route: 048
     Dates: start: 20241009, end: 20241120
  6. TS-1 [Suspect]
     Active Substance: GIMERACIL\OTERACIL POTASSIUM\TEGAFUR
     Indication: Pancreatic carcinoma
     Dates: end: 20240311
  7. SENNOSIDES A AND B [Concomitant]
     Active Substance: SENNOSIDES A AND B
     Indication: Constipation
     Route: 048
     Dates: start: 2022
  8. RABEPRAZOLE SODIUM [Concomitant]
     Active Substance: RABEPRAZOLE SODIUM
     Indication: Prophylaxis against gastrointestinal ulcer
     Dosage: 10 MG, EVERYDAY
     Route: 048
     Dates: start: 2022
  9. EZETIMIBE [Concomitant]
     Active Substance: EZETIMIBE
     Indication: Hyperlipidaemia
     Dosage: 10 MG, EVERYDAY
     Route: 048
     Dates: start: 2022
  10. DIQUAFOSOL TETRASODIUM [Concomitant]
     Active Substance: DIQUAFOSOL TETRASODIUM
     Indication: Dry eye
     Route: 047
     Dates: start: 2023
  11. PRANOPROFEN [Concomitant]
     Active Substance: PRANOPROFEN
     Indication: Infection prophylaxis
     Route: 047
     Dates: start: 2023
  12. TELMISARTAN [Concomitant]
     Active Substance: TELMISARTAN
     Indication: Hypertension
     Dosage: 20 MG, EVERYDAY
     Route: 048
     Dates: start: 2022
  13. SITAGLIPTIN [Concomitant]
     Active Substance: SITAGLIPTIN
     Indication: Diabetes mellitus
     Dosage: 50 MG, EVERYDAY
     Route: 048
     Dates: start: 20240313
  14. HUMALOG [Concomitant]
     Active Substance: INSULIN LISPRO
     Indication: Diabetes mellitus
     Route: 058
     Dates: start: 2023
  15. INSULIN GLARGINE [Concomitant]
     Active Substance: INSULIN GLARGINE
     Indication: Diabetes mellitus
     Route: 058
     Dates: start: 2023
  16. LOPERAMIDE HYDROCHLORIDE [Concomitant]
     Active Substance: LOPERAMIDE HYDROCHLORIDE
     Indication: Diarrhoea
     Route: 048
     Dates: start: 20240222
  17. TS-1 [Concomitant]
     Active Substance: GIMERACIL\OTERACIL POTASSIUM\TEGAFUR
     Indication: Pancreatic carcinoma
     Dosage: 100 MG,EVERYDAY, ONLY ON THE DAY OF IRRADIATIO
     Dates: start: 20240130, end: 20240311
  18. SODIUM PHOSPHATE [Concomitant]
     Active Substance: SODIUM PHOSPHATE
     Indication: Hypophosphataemia
     Dates: start: 20240319
  19. DAYVIGO [Concomitant]
     Active Substance: LEMBOREXANT
     Indication: Prophylaxis
     Route: 048
     Dates: start: 20240316
  20. LOXOPROFEN [Concomitant]
     Active Substance: LOXOPROFEN
     Indication: Tumour pain
     Route: 048
     Dates: start: 20240319
  21. MAGNESIUM OXIDE [Concomitant]
     Active Substance: MAGNESIUM OXIDE
     Indication: Constipation
     Route: 048
     Dates: start: 20240321
  22. ESOMEPRAZOLE [Concomitant]
     Active Substance: ESOMEPRAZOLE
     Indication: Prophylaxis against gastrointestinal ulcer
     Dosage: 20 MG, 1X/DAY
     Route: 048
     Dates: start: 20240320
  23. ONEALFA [Concomitant]
     Active Substance: ALFACALCIDOL
     Indication: Osteoporosis prophylaxis
     Dosage: 0.5 UG, 1X/DAY
     Route: 048
     Dates: start: 20240402
  24. CALONAL [Concomitant]
     Active Substance: ACETAMINOPHEN
     Indication: Pyrexia
     Route: 048
     Dates: start: 20240402

REACTIONS (9)
  - Pancreatic carcinoma [Fatal]
  - Malignant neoplasm progression [Fatal]
  - Decreased appetite [Not Recovered/Not Resolved]
  - Portal vein thrombosis [Recovered/Resolved]
  - Cholangitis [Recovered/Resolved]
  - Streptococcal infection [Recovered/Resolved]
  - Clostridial infection [Recovered/Resolved]
  - Gastric ulcer [Recovering/Resolving]
  - Hepatic infection [Not Recovered/Not Resolved]

NARRATIVE: CASE EVENT DATE: 20240316
